FAERS Safety Report 7518279-6 (Version None)
Quarter: 2011Q2

REPORT INFORMATION
  Report Type: 
  Country: None (occurrence: None)
  Receive Date: 20110602
  Receipt Date: 20110523
  Transmission Date: 20111010
  Serious: Yes (Other)
  Sender: FDA-Public Use
  Company Number: US-BAYER-2011-045182

PATIENT
  Sex: Female

DRUGS (1)
  1. YASMIN [Suspect]
     Dosage: UNK
     Dates: start: 20040901, end: 20071201

REACTIONS (9)
  - VOMITING [None]
  - CHOLELITHIASIS [None]
  - GENERAL PHYSICAL HEALTH DETERIORATION [None]
  - ANXIETY [None]
  - NAUSEA [None]
  - INJURY [None]
  - PAIN [None]
  - EMOTIONAL DISTRESS [None]
  - ABDOMINAL PAIN [None]
